FAERS Safety Report 16023175 (Version 2)
Quarter: 2019Q1

REPORT INFORMATION
  Report Type: Spontaneous
  Country: US (occurrence: US)
  Receive Date: 20190301
  Receipt Date: 20190307
  Transmission Date: 20190418
  Serious: Yes (Death, Life-Threatening, Hospitalization)
  Sender: FDA-Public Use
  Company Number: US-BAYER-2019-041151

PATIENT
  Age: 75 Year
  Sex: Female

DRUGS (2)
  1. ACETYLSALICYLIC ACID (CARDIO) [Suspect]
     Active Substance: ASPIRIN
     Indication: ANTIPLATELET THERAPY
  2. CLOPIDOGREL [Suspect]
     Active Substance: CLOPIDOGREL BISULFATE
     Indication: ANTIPLATELET THERAPY

REACTIONS (18)
  - Tongue injury [None]
  - Ecchymosis [None]
  - Hypotension [None]
  - Cardiac arrest [Fatal]
  - Swollen tongue [None]
  - Anaemia [None]
  - Fall [None]
  - Brain injury [Fatal]
  - Tongue haematoma [None]
  - Dysarthria [None]
  - Tongue oedema [None]
  - Labelled drug-drug interaction medication error [None]
  - Tongue haemorrhage [None]
  - Mouth haemorrhage [None]
  - Bradycardia [None]
  - Dyspnoea [None]
  - Dysphonia [None]
  - Protrusion tongue [None]
